FAERS Safety Report 10912932 (Version 2)
Quarter: 2017Q1

REPORT INFORMATION
  Report Type: Spontaneous
  Country: US (occurrence: US)
  Receive Date: 20150310
  Receipt Date: 20170127
  Transmission Date: 20170428
  Serious: Yes (Hospitalization)
  Sender: FDA-Public Use
  Company Number: US-ZYDUS-006836

PATIENT
  Age: 9 Year
  Sex: Male

DRUGS (1)
  1. CLINDAMYCIN. [Suspect]
     Active Substance: CLINDAMYCIN
     Indication: CELLULITIS
     Route: 065

REACTIONS (21)
  - Hypoalbuminaemia [Recovering/Resolving]
  - Respiratory disorder [Recovering/Resolving]
  - Acute generalised exanthematous pustulosis [Recovering/Resolving]
  - Leukocytosis [Recovering/Resolving]
  - Generalised oedema [Recovering/Resolving]
  - Wheezing [Recovering/Resolving]
  - Anaemia [Recovering/Resolving]
  - Myalgia [Recovering/Resolving]
  - Rash erythematous [Recovering/Resolving]
  - Rash papular [Recovering/Resolving]
  - Skin exfoliation [Recovering/Resolving]
  - Nausea [Recovering/Resolving]
  - Skin induration [Recovering/Resolving]
  - Lymphocytic infiltration [Recovering/Resolving]
  - Pyrexia [Recovered/Resolved]
  - Nikolsky^s sign [Recovering/Resolving]
  - Rash pustular [Recovering/Resolving]
  - Dyspnoea [Recovering/Resolving]
  - Hypotension [Recovering/Resolving]
  - Generalised erythema [Recovering/Resolving]
  - Rash [Recovering/Resolving]
